FAERS Safety Report 26204695 (Version 1)
Quarter: 2025Q4

REPORT INFORMATION
  Report Type: Spontaneous
  Country: GB (occurrence: GB)
  Receive Date: 20251227
  Receipt Date: 20251227
  Transmission Date: 20260118
  Serious: Yes (Other)
  Sender: ALEXION PHARMACEUTICALS
  Company Number: None

PATIENT
  Age: 61 Year
  Sex: Female
  Weight: 73 kg

DRUGS (4)
  1. ROSUVASTATIN [Suspect]
     Active Substance: ROSUVASTATIN
     Indication: Blood cholesterol increased
     Dosage: TAKE ONE TABLET ON ALTERNATE DAYS TO LOWER CHOLESTEROL (CHOL)...
     Route: 065
     Dates: start: 20251124
  2. MOMETASONE [Concomitant]
     Active Substance: MOMETASONE
     Dosage: TWO SPRAYS DAILY
     Route: 065
     Dates: start: 20251003, end: 20251031
  3. AMOXICILLIN [Concomitant]
     Active Substance: AMOXICILLIN
     Dosage: TAKE ONE CAPSULE THREE TIMES A DAY FOR 7DAYS, T...
     Route: 065
     Dates: start: 20251027, end: 20251103
  4. BETAMETHASONE VALERATE [Concomitant]
     Active Substance: BETAMETHASONE VALERATE
     Dosage: POTENT STEROID - APPLY TWICE DAILY TO SCALP AS ...
     Route: 065

REACTIONS (2)
  - Lethargy [Recovering/Resolving]
  - Brain fog [Recovering/Resolving]
